FAERS Safety Report 25636003 (Version 2)
Quarter: 2025Q3

REPORT INFORMATION
  Report Type: Spontaneous
  Country: US (occurrence: US)
  Receive Date: 20250803
  Receipt Date: 20250901
  Transmission Date: 20251020
  Serious: No
  Sender: SANOFI AVENTIS
  Company Number: US-SA-2025SA224566

PATIENT
  Age: 66 Year
  Sex: Male

DRUGS (1)
  1. DUPIXENT [Suspect]
     Active Substance: DUPILUMAB
     Indication: Dermatitis
     Dosage: 300 MG, QOW
     Route: 058

REACTIONS (7)
  - Dry skin [Recovering/Resolving]
  - Tremor [Recovering/Resolving]
  - Condition aggravated [Recovering/Resolving]
  - Skin swelling [Recovered/Resolved]
  - Pruritus [Recovering/Resolving]
  - Dry eye [Unknown]
  - Product use in unapproved indication [Unknown]
